FAERS Safety Report 4623482-9 (Version None)
Quarter: 2005Q1

REPORT INFORMATION
  Report Type: 
  Country: None (occurrence: None)
  Receive Date: 20050330
  Receipt Date: 20050315
  Transmission Date: 20050727
  Serious: Yes (Life-Threatening, Hospitalization)
  Sender: FDA-Public Use
  Company Number: 2005-BP-04386RO

PATIENT
  Age: 77 Year
  Sex: Male

DRUGS (12)
  1. CLARITHROMYCIN [Suspect]
     Indication: UPPER RESPIRATORY TRACT INFECTION
     Dosage: SEE IMAGE
     Route: 048
     Dates: start: 20031201, end: 20031201
  2. CLARITHROMYCIN [Suspect]
     Indication: UPPER RESPIRATORY TRACT INFECTION
     Dosage: SEE IMAGE
     Route: 048
     Dates: start: 20031201
  3. NIFEDIPINE [Suspect]
     Indication: HYPERTENSION
     Dosage: SEE IMAGE
     Route: 048
     Dates: start: 20031001, end: 20031201
  4. NIFEDIPINE [Suspect]
     Indication: HYPERTENSION
     Dosage: SEE IMAGE
     Route: 048
     Dates: start: 20031201
  5. DOXAZOSIN (DOXAZOSIN) [Concomitant]
  6. CAPTOPRIL [Concomitant]
  7. VALSARTAN [Concomitant]
  8. METFORMIN HCL [Concomitant]
  9. GLYBURIDE [Concomitant]
  10. ASPIRIN [Concomitant]
  11. ALBUTEROL [Concomitant]
  12. BUDESONIDE [Concomitant]

REACTIONS (43)
  - ABDOMINAL PAIN [None]
  - ACIDOSIS [None]
  - ATRIOVENTRICULAR BLOCK [None]
  - BLOOD CREATINE PHOSPHOKINASE INCREASED [None]
  - BLOOD CREATINE PHOSPHOKINASE MB INCREASED [None]
  - BLOOD CREATININE INCREASED [None]
  - BLOOD PRESSURE SYSTOLIC INCREASED [None]
  - BLOOD UREA INCREASED [None]
  - BODY TEMPERATURE DECREASED [None]
  - BRADYCARDIA [None]
  - BRONCHOALVEOLAR LAVAGE ABNORMAL [None]
  - CANDIDIASIS [None]
  - CEREBROVASCULAR ACCIDENT [None]
  - DEPRESSED LEVEL OF CONSCIOUSNESS [None]
  - DRUG EFFECT DECREASED [None]
  - DRUG INTERACTION [None]
  - DYSPNOEA EXERTIONAL [None]
  - ELECTROCARDIOGRAM QRS COMPLEX SHORTENED [None]
  - ELECTROCARDIOGRAM QT INTERVAL ABNORMAL [None]
  - ELECTROLYTE IMBALANCE [None]
  - HAEMODIALYSIS [None]
  - HEART RATE DECREASED [None]
  - HYPERGLYCAEMIA [None]
  - HYPERKALAEMIA [None]
  - HYPOCALCAEMIA [None]
  - HYPONATRAEMIA [None]
  - HYPOTENSION [None]
  - LABILE BLOOD PRESSURE [None]
  - METABOLIC ACIDOSIS [None]
  - OEDEMA PERIPHERAL [None]
  - ORTHOPNOEA [None]
  - PAIN [None]
  - PERIPHERAL COLDNESS [None]
  - PRODUCTIVE COUGH [None]
  - PULSE ABSENT [None]
  - RENAL IMPAIRMENT [None]
  - RESPIRATORY TRACT INFECTION [None]
  - RHYTHM IDIOVENTRICULAR [None]
  - SEPTIC SHOCK [None]
  - SPUTUM DISCOLOURED [None]
  - THERAPY NON-RESPONDER [None]
  - URINE OUTPUT DECREASED [None]
  - VASCULAR RESISTANCE SYSTEMIC DECREASED [None]
